FAERS Safety Report 24707920 (Version 1)
Quarter: 2024Q4

REPORT INFORMATION
  Report Type: Spontaneous
  Country: AT (occurrence: AT)
  Receive Date: 20241206
  Receipt Date: 20241206
  Transmission Date: 20250114
  Serious: Yes (Other)
  Sender: ELI LILLY AND COMPANY
  Company Number: AT-Merck Healthcare KGaA-2024062837

PATIENT

DRUGS (2)
  1. ERBITUX [Suspect]
     Active Substance: CETUXIMAB
     Indication: Squamous cell carcinoma of head and neck
     Dosage: UNK, UNKNOWN
     Route: 065
  2. PEMBROLIZUMAB [Suspect]
     Active Substance: PEMBROLIZUMAB
     Indication: Squamous cell carcinoma of head and neck
     Dosage: UNK, UNKNOWN
     Route: 065

REACTIONS (4)
  - Immune-mediated enterocolitis [Unknown]
  - Immune-mediated pancreatitis [Unknown]
  - Type 1 diabetes mellitus [Unknown]
  - Off label use [Unknown]
